FAERS Safety Report 15188157 (Version 2)
Quarter: 2018Q3

REPORT INFORMATION
  Report Type: Spontaneous
  Country: IE (occurrence: IE)
  Receive Date: 20180724
  Receipt Date: 20180815
  Transmission Date: 20181010
  Serious: No
  Sender: FDA-Public Use
  Company Number: IE-AMGEN-IRLSP2018099183

PATIENT
  Age: 39 Year
  Sex: Female

DRUGS (4)
  1. ENBREL [Suspect]
     Active Substance: ETANERCEPT
     Indication: BEHCET^S SYNDROME
     Dosage: 50 MG, QWK
     Route: 058
     Dates: start: 201612, end: 20180515
  2. DELTACORTRIL [Concomitant]
     Active Substance: PREDNISOLONE
     Indication: CONDITION AGGRAVATED
     Dosage: 5 MG, AS NEEDED
  3. METHOTREXATE. [Concomitant]
     Active Substance: METHOTREXATE
     Indication: BEHCET^S SYNDROME
     Dosage: 15 MG, UNK
     Dates: start: 20171102, end: 20180201
  4. COLGOUT [Concomitant]
     Active Substance: COLCHICINE
     Indication: BEHCET^S SYNDROME
     Dosage: 500 MG, AS NEEDED
     Dates: start: 201711, end: 201802

REACTIONS (1)
  - Drug ineffective for unapproved indication [Unknown]

NARRATIVE: CASE EVENT DATE: 201612
